FAERS Safety Report 6847922-X (Version None)
Quarter: 2010Q3

REPORT INFORMATION
  Report Type: 
  Country: None (occurrence: None)
  Receive Date: 20100716
  Receipt Date: 20100705
  Transmission Date: 20110219
  Serious: Yes (Hospitalization, Other)
  Sender: FDA-Public Use
  Company Number: JP-PFIZER INC-2010083212

PATIENT
  Age: 70 Year
  Sex: Male

DRUGS (2)
  1. AZULFIDINE [Suspect]
     Indication: RHEUMATOID ARTHRITIS
     Dosage: 500MG PER DAY
     Route: 048
     Dates: start: 20100611, end: 20100625
  2. ADOAIR [Concomitant]

REACTIONS (3)
  - DEHYDRATION [None]
  - PANCYTOPENIA [None]
  - PYREXIA [None]
